FAERS Safety Report 10272145 (Version 2)
Quarter: 2014Q3

REPORT INFORMATION
  Report Type: Report from Study
  Country: US (occurrence: US)
  Receive Date: 20140702
  Receipt Date: 20140827
  Transmission Date: 20150326
  Serious: Yes (Hospitalization)
  Sender: FDA-Public Use
  Company Number: US-ROCHE-1425665

PATIENT
  Age: 33 Year
  Sex: Female
  Weight: 71.28 kg

DRUGS (15)
  1. DICLOFENAC [Concomitant]
     Active Substance: DICLOFENAC
     Dosage: LAST 6 MONTHS
     Route: 065
  2. OXYCONTIN [Concomitant]
     Active Substance: OXYCODONE HYDROCHLORIDE
     Route: 065
  3. ACTEMRA [Suspect]
     Active Substance: TOCILIZUMAB
     Indication: RHEUMATOID ARTHRITIS
     Route: 042
  4. ACTEMRA [Suspect]
     Active Substance: TOCILIZUMAB
     Route: 042
  5. CELEXA (UNITED STATES) [Concomitant]
     Dosage: DAY FOR LAST 3 YEARS
     Route: 065
  6. OXYCODONE [Concomitant]
     Active Substance: OXYCODONE
     Dosage: EVERY DAY, 4 TABS DAILY
     Route: 065
  7. ALPRAZOLAM. [Concomitant]
     Active Substance: ALPRAZOLAM
     Dosage: 1/2 TAB EVERY AM AND 1 TAB PRN DAILY
     Route: 065
  8. AMOXICILLIN. [Concomitant]
     Active Substance: AMOXICILLIN
  9. GABAPENTIN. [Concomitant]
     Active Substance: GABAPENTIN
     Dosage: 2 CAPS AT BEDTIME FOR LAST 6 MONTHS
     Route: 065
  10. ACTEMRA [Suspect]
     Active Substance: TOCILIZUMAB
     Route: 042
     Dates: start: 20140618
  11. ABILIFY [Concomitant]
     Active Substance: ARIPIPRAZOLE
     Route: 065
  12. METHOTREXATE [Concomitant]
     Active Substance: METHOTREXATE
     Dosage: SC FOR LAST 3 YEARS BUT PO FOR 5 YEARS
     Route: 058
  13. AMBIEN [Concomitant]
     Active Substance: ZOLPIDEM TARTRATE
     Dosage: EXTENDED RELEASE; EVERY NIGHT FOR LAST 3 YEARS
     Route: 065
  14. ABILIFY [Concomitant]
     Active Substance: ARIPIPRAZOLE
     Dosage: INCREASED A MONTH AGO TO 10 MG EVERY MORNING AND 10 MG EVERY EVENING
     Route: 065
  15. CYCLOBENZAPRINE [Concomitant]
     Active Substance: CYCLOBENZAPRINE
     Dosage: FOR LAST YEAR.
     Route: 065

REACTIONS (8)
  - Dehydration [Unknown]
  - Injection site bruising [Not Recovered/Not Resolved]
  - Rash erythematous [Not Recovered/Not Resolved]
  - Nausea [Recovered/Resolved]
  - Diarrhoea [Unknown]
  - Ear infection [Recovered/Resolved]
  - Vomiting [Recovered/Resolved]
  - Thrombophlebitis superficial [Not Recovered/Not Resolved]

NARRATIVE: CASE EVENT DATE: 20140618
